FAERS Safety Report 23461267 (Version 1)
Quarter: 2024Q1

REPORT INFORMATION
  Report Type: Spontaneous
  Country: US (occurrence: None)
  Receive Date: 20240130
  Receipt Date: 20240130
  Transmission Date: 20240409
  Serious: Yes (Life-Threatening, Hospitalization, Other)
  Sender: FDA-Public Use
  Company Number: None

PATIENT
  Age: 78 Year
  Sex: Female

DRUGS (2)
  1. ENFORTUMAB [Suspect]
     Active Substance: ENFORTUMAB
     Indication: Transitional cell cancer of renal pelvis and ureter metastatic
     Dates: start: 20240105
  2. KEYTRUDA [Concomitant]
     Active Substance: PEMBROLIZUMAB

REACTIONS (5)
  - Asthenia [None]
  - Rash papular [None]
  - Rash [None]
  - SJS-TEN overlap [None]
  - Therapy cessation [None]

NARRATIVE: CASE EVENT DATE: 20240124
